FAERS Safety Report 4719843-X (Version None)
Quarter: 2005Q3

REPORT INFORMATION
  Report Type: 
  Country: None (occurrence: None)
  Receive Date: 20050721
  Receipt Date: 20041207
  Transmission Date: 20060218
  Serious: No
  Sender: FDA-Public Use
  Company Number: US-GLAXOSMITHKLINE-A0536563A

PATIENT
  Age: 52 Year
  Sex: Female

DRUGS (4)
  1. AVANDIA [Suspect]
     Dosage: 2MG WEEKLY
     Route: 048
     Dates: start: 20041203
  2. COZAAR [Concomitant]
  3. ZOLOFT [Concomitant]
  4. XANAX [Concomitant]

REACTIONS (2)
  - ABDOMINAL PAIN LOWER [None]
  - IRRITABILITY [None]
